FAERS Safety Report 8500953-6 (Version None)
Quarter: 2012Q3

REPORT INFORMATION
  Report Type: 
  Country: None (occurrence: None)
  Receive Date: 20120710
  Receipt Date: 20120705
  Transmission Date: 20120928
  Serious: Yes (Life-Threatening)
  Sender: FDA-Public Use
  Company Number: CH-ROCHE-1085954

PATIENT
  Age: 81 Year
  Sex: Female

DRUGS (3)
  1. LUCENTIS [Suspect]
     Dosage: THIRD DOSE
     Route: 050
     Dates: start: 20110525
  2. LUCENTIS [Suspect]
     Indication: AGE-RELATED MACULAR DEGENERATION
     Dosage: FIRST DOSE
     Route: 050
     Dates: start: 20110330
  3. LUCENTIS [Suspect]
     Dosage: SECOND DOSE
     Route: 050

REACTIONS (1)
  - CEREBRAL INFARCTION [None]
